FAERS Safety Report 10460975 (Version 1)
Quarter: 2014Q3

REPORT INFORMATION
  Report Type: Spontaneous
  Country: US (occurrence: None)
  Receive Date: 20140829
  Receipt Date: 20140829
  Transmission Date: 20150326
  Serious: Yes (Hospitalization)
  Sender: FDA-Public Use
  Company Number: M2014-009D

PATIENT
  Age: 30 Year
  Sex: Female

DRUGS (4)
  1. NORMAL SALINE [Suspect]
     Active Substance: SODIUM CHLORIDE
     Indication: ANTIALLERGIC THERAPY
     Dosage: 0.2ML DILUTE
     Dates: start: 201108
  2. CLINDAMYCIN [Concomitant]
     Active Substance: CLINDAMYCIN\CLINDAMYCIN PHOSPHATE
  3. ADVIL [Concomitant]
     Active Substance: IBUPROFEN
  4. CANDIDA ALBICANS. [Suspect]
     Active Substance: CANDIDA ALBICANS
     Indication: ANTIALLERGIC THERAPY
     Dosage: 0.2ML DILUTE
     Dates: start: 201108

REACTIONS (7)
  - Lymphadenopathy [None]
  - Vomiting [None]
  - Headache [None]
  - Malaise [None]
  - Peripheral swelling [None]
  - Sleep disorder [None]
  - Influenza like illness [None]

NARRATIVE: CASE EVENT DATE: 20140811
